FAERS Safety Report 20411952 (Version 1)
Quarter: 2022Q1

REPORT INFORMATION
  Report Type: Spontaneous
  Country: US (occurrence: US)
  Receive Date: 20220201
  Receipt Date: 20220201
  Transmission Date: 20220423
  Serious: No
  Sender: FDA-Public Use
  Company Number: US-ABBVIE-21K-163-3798728-00

PATIENT
  Age: 82 Year
  Sex: Male

DRUGS (5)
  1. LUPRON DEPOT [Suspect]
     Active Substance: LEUPROLIDE ACETATE
     Indication: Product used for unknown indication
     Route: 065
  2. XTANDI [Suspect]
     Active Substance: ENZALUTAMIDE
     Indication: Prostate cancer
     Route: 048
     Dates: start: 20200604, end: 20200613
  3. XTANDI [Suspect]
     Active Substance: ENZALUTAMIDE
     Route: 048
     Dates: start: 20200707
  4. CELECOXIB [Concomitant]
     Active Substance: CELECOXIB
     Indication: Product used for unknown indication
     Dates: start: 202005
  5. ASPIRIN [Concomitant]
     Active Substance: ASPIRIN
     Indication: Product used for unknown indication

REACTIONS (8)
  - Upper respiratory tract congestion [Unknown]
  - Sinus disorder [Unknown]
  - Pharyngeal disorder [Unknown]
  - Ophthalmic migraine [Recovered/Resolved]
  - Product size issue [Unknown]
  - Dyspnoea [Unknown]
  - Dysphagia [Unknown]
  - Hot flush [Unknown]

NARRATIVE: CASE EVENT DATE: 20200601
